FAERS Safety Report 15128263 (Version 3)
Quarter: 2023Q2

REPORT INFORMATION
  Report Type: Report from Study
  Country: IT (occurrence: IT)
  Receive Date: 20180711
  Receipt Date: 20230519
  Transmission Date: 20230722
  Serious: Yes (Other)
  Sender: FDA-Public Use
  Company Number: IT-AUROBINDO-AUR-APL-2017-38273

PATIENT
  Age: 67 Year
  Sex: Female

DRUGS (6)
  1. AMOXICILLIN [Suspect]
     Active Substance: AMOXICILLIN
     Indication: Product used for unknown indication
     Dosage: UNK
     Route: 065
  2. AMOXICILLIN\CLAVULANIC ACID [Suspect]
     Active Substance: AMOXICILLIN\CLAVULANIC ACID
     Indication: Product used for unknown indication
     Dosage: UNK
     Route: 065
  3. CEFADROXIL [Suspect]
     Active Substance: CEFADROXIL
     Indication: Product used for unknown indication
     Dosage: 2 DOSAGE FORM (2 MG/ML IN 09% SODIUM CHLORIDE)
     Route: 023
  4. CEFADROXIL [Suspect]
     Active Substance: CEFADROXIL
     Dosage: UNK
     Route: 048
  5. CEFACLOR [Suspect]
     Active Substance: CEFACLOR
     Indication: Product used for unknown indication
     Dosage: 2 DOSAGE FORM, (2 MG/ML IN 09 % SODIUM CHLORIDE)
     Route: 023
  6. CEFACLOR [Suspect]
     Active Substance: CEFACLOR
     Dosage: UNK
     Route: 048

REACTIONS (3)
  - Type IV hypersensitivity reaction [Unknown]
  - Rash maculo-papular [Unknown]
  - Cross sensitivity reaction [Unknown]
